FAERS Safety Report 5721196-5 (Version None)
Quarter: 2008Q2

REPORT INFORMATION
  Report Type: 
  Country: None (occurrence: None)
  Receive Date: 20080428
  Receipt Date: 20080428
  Transmission Date: 20081010
  Serious: Yes (Other)
  Sender: FDA-Public Use
  Company Number: None

PATIENT
  Age: 36 Year
  Sex: Female
  Weight: 63.5036 kg

DRUGS (2)
  1. SINGULAIR [Suspect]
     Indication: ASTHMA
     Dosage: DAILY PO
     Route: 048
     Dates: start: 20070810, end: 20071020
  2. SINGULAIR [Suspect]
     Indication: HYPERSENSITIVITY
     Dosage: DAILY PO
     Route: 048
     Dates: start: 20070810, end: 20071020

REACTIONS (12)
  - ABNORMAL BEHAVIOUR [None]
  - ACTIVITIES OF DAILY LIVING IMPAIRED [None]
  - ANXIETY [None]
  - ANXIETY DISORDER [None]
  - CRYING [None]
  - DEPRESSION [None]
  - DYSPHEMIA [None]
  - MENTAL DISORDER [None]
  - OCHLOPHOBIA [None]
  - SOCIAL AVOIDANT BEHAVIOUR [None]
  - SUICIDAL IDEATION [None]
  - TREMOR [None]
